FAERS Safety Report 4895476-X (Version None)
Quarter: 2006Q1

REPORT INFORMATION
  Report Type: 
  Country: None (occurrence: None)
  Receive Date: 20060130
  Receipt Date: 20060123
  Transmission Date: 20060701
  Serious: Yes (Other)
  Sender: FDA-Public Use
  Company Number: US-BOEHRINGER INGELHEIM PHARMACEUTICALS, INC.-2006-BP-00867BP

PATIENT
  Sex: Female
  Weight: 99.79 kg

DRUGS (8)
  1. MIRAPEX [Suspect]
     Indication: PARKINSON'S DISEASE
     Route: 048
     Dates: start: 20051201
  2. SELEGILINE HCL [Suspect]
     Indication: PARKINSON'S DISEASE
     Route: 048
     Dates: start: 20051201
  3. PEG-INTRON [Concomitant]
     Indication: HEPATITIS C
     Route: 058
     Dates: start: 20051009
  4. REBETOL [Concomitant]
     Indication: HEPATITIS C
     Route: 048
     Dates: start: 20051009
  5. FOLIC ACID [Concomitant]
     Route: 048
  6. LASIX [Concomitant]
     Route: 048
  7. POTASSIUM CHLORIDE SUSTAINED RELEASE [Concomitant]
     Route: 048
  8. INDERAL LA SUSTAINED RELEASE [Concomitant]
     Route: 048

REACTIONS (5)
  - DRY MOUTH [None]
  - FEELING ABNORMAL [None]
  - INSOMNIA [None]
  - MEMORY IMPAIRMENT [None]
  - OBSESSIVE-COMPULSIVE DISORDER [None]
